FAERS Safety Report 11832170 (Version 1)
Quarter: 2015Q4

REPORT INFORMATION
  Report Type: Spontaneous
  Country: US (occurrence: US)
  Receive Date: 20151214
  Receipt Date: 20151214
  Transmission Date: 20160305
  Serious: Yes (Death, Hospitalization, Other)
  Sender: FDA-Public Use
  Company Number: US-JUBILANT CADISTA PHARMACEUTICALS-2015JUB00405

PATIENT
  Age: 21 Year
  Sex: Female
  Weight: 59 kg

DRUGS (6)
  1. FLUOXETINE [Suspect]
     Active Substance: FLUOXETINE HYDROCHLORIDE
     Dosage: AS MUCH AS 1.2 GRAMS, ONCE
     Route: 048
  2. CARBAMAZEPINE. [Suspect]
     Active Substance: CARBAMAZEPINE
     Dosage: AS MUCH AS 17.8 GRAMS, ONCE
     Route: 048
  3. IBUPROFEN. [Suspect]
     Active Substance: IBUPROFEN
     Dosage: AS MUCH AS 14.4 GRAMS, ONCE
     Route: 048
  4. TOPIRAMATE. [Suspect]
     Active Substance: TOPIRAMATE
     Route: 065
  5. LAMOTRIGINE. [Suspect]
     Active Substance: LAMOTRIGINE
     Route: 048
  6. HYDROXYZINE [Suspect]
     Active Substance: HYDROXYZINE\HYDROXYZINE HYDROCHLORIDE
     Dosage: AS MUCH AS 4.5 GRAMS, ONCE
     Route: 048

REACTIONS (7)
  - Drug interaction [Fatal]
  - Electrocardiogram QT prolonged [Unknown]
  - Cardiac arrest [Fatal]
  - Completed suicide [Fatal]
  - Intentional overdose [Fatal]
  - Toxicity to various agents [Fatal]
  - Acute respiratory distress syndrome [Fatal]
